FAERS Safety Report 13342867 (Version 1)
Quarter: 2017Q1

REPORT INFORMATION
  Report Type: Spontaneous
  Country: US (occurrence: US)
  Receive Date: 20170316
  Receipt Date: 20170316
  Transmission Date: 20170428
  Serious: No
  Sender: FDA-Public Use
  Company Number: US-PFIZER INC-2017106933

PATIENT
  Sex: Female

DRUGS (1)
  1. XELJANZ [Suspect]
     Active Substance: TOFACITINIB CITRATE
     Indication: RHEUMATOID ARTHRITIS
     Dosage: 5 MG, UNK

REACTIONS (13)
  - Sinus congestion [Unknown]
  - Back pain [Unknown]
  - Fatigue [Unknown]
  - Arthralgia [Unknown]
  - Muscle spasms [Unknown]
  - Cough [Unknown]
  - Weight increased [Unknown]
  - Crepitations [Unknown]
  - Neck pain [Unknown]
  - Dry skin [Unknown]
  - Nocturia [Unknown]
  - Upper respiratory tract infection [Unknown]
  - Dry mouth [Unknown]
